FAERS Safety Report 9476135 (Version 1)
Quarter: 2013Q3

REPORT INFORMATION
  Report Type: Spontaneous
  Country: GB (occurrence: None)
  Receive Date: 20130821
  Receipt Date: 20130821
  Transmission Date: 20140515
  Serious: Yes (Other)
  Sender: FDA-Public Use
  Company Number: AUR-APL-2013-06692

PATIENT
  Age: 64 Year
  Sex: Male

DRUGS (3)
  1. METFORMIN (METFORMIN) [Suspect]
     Indication: PRODUCT USED FOR UNKNOWN INDICATION
  2. BYDUREON [Suspect]
     Indication: TYPE 2 DIABETES MELLITUS
     Route: 058
  3. BYETTA [Suspect]
     Indication: TYPE 2 DIABETES MELLITUS

REACTIONS (7)
  - Glycosylated haemoglobin increased [None]
  - Stress [None]
  - Drug effect decreased [None]
  - Weight decreased [None]
  - Rash [None]
  - Skin disorder [None]
  - Hypoglycaemia [None]
